FAERS Safety Report 9108007 (Version 1)
Quarter: 2013Q1

REPORT INFORMATION
  Report Type: Spontaneous
  Country: US (occurrence: US)
  Receive Date: 20130221
  Receipt Date: 20130221
  Transmission Date: 20140127
  Serious: Yes (Hospitalization)
  Sender: FDA-Public Use
  Company Number: US-ELI_LILLY_AND_COMPANY-US201301008580

PATIENT
  Age: 52 Year
  Sex: Female
  Weight: 96.15 kg

DRUGS (16)
  1. FORTEO [Suspect]
     Indication: OSTEOPOROSIS
     Dosage: 20 UG, QD
     Route: 058
     Dates: start: 20121024
  2. ADVAIR [Concomitant]
  3. ALENDRONATE [Concomitant]
  4. CALCIUM [Concomitant]
  5. CENTRUM SILVER [Concomitant]
  6. CRESTOR [Concomitant]
  7. CYMBALTA [Concomitant]
  8. ACETAMINOPHEN [Concomitant]
  9. POTASSIUM [Concomitant]
  10. PREDNISONE [Concomitant]
  11. SPIRIVA [Concomitant]
  12. VITAMIN B12 [Concomitant]
  13. VITAMIN C [Concomitant]
  14. VITAMIN D [Concomitant]
  15. ROFLUMILAST [Concomitant]
  16. DEXLANSOPRAZOLE [Concomitant]

REACTIONS (1)
  - Bronchitis [Recovered/Resolved]
